FAERS Safety Report 13399667 (Version 5)
Quarter: 2018Q2

REPORT INFORMATION
  Report Type: Report from Study
  Country: US (occurrence: US)
  Receive Date: 20170404
  Receipt Date: 20180515
  Transmission Date: 20180711
  Serious: Yes (Hospitalization, Other)
  Sender: FDA-Public Use
  Company Number: US-ALEXION PHARMACEUTICALS INC.-A201703241

PATIENT
  Sex: Male

DRUGS (1)
  1. SOLIRIS [Suspect]
     Active Substance: ECULIZUMAB
     Indication: PAROXYSMAL NOCTURNAL HAEMOGLOBINURIA
     Dosage: 900 MG, Q2W
     Route: 042
     Dates: start: 20130121, end: 20180503

REACTIONS (9)
  - Nasopharyngitis [Not Recovered/Not Resolved]
  - Haemolysis [Unknown]
  - Gastroenteritis viral [Recovered/Resolved]
  - Diarrhoea [Unknown]
  - Hospitalisation [Recovered/Resolved]
  - Blood bilirubin increased [Unknown]
  - Blood bilirubin abnormal [Unknown]
  - Haemoglobin decreased [Unknown]
  - Influenza [Recovered/Resolved]

NARRATIVE: CASE EVENT DATE: 20170327
